FAERS Safety Report 6120646-2 (Version None)
Quarter: 2009Q1

REPORT INFORMATION
  Report Type: 
  Country: None (occurrence: None)
  Receive Date: 20090312
  Receipt Date: 20090312
  Transmission Date: 20090719
  Serious: Yes (Life-Threatening, Other)
  Sender: FDA-Public Use
  Company Number: None

PATIENT
  Age: 9 Year
  Sex: Male
  Weight: 38.5557 kg

DRUGS (1)
  1. SINGULAIR [Suspect]
     Indication: BRONCHITIS
     Dosage: 5 MG 1 X EACH DAY PO
     Route: 048
     Dates: start: 20090302, end: 20090308

REACTIONS (4)
  - APNOEA [None]
  - CONVULSION [None]
  - EMOTIONAL DISORDER [None]
  - STRESS [None]
